FAERS Safety Report 13134996 (Version 1)
Quarter: 2017Q1

REPORT INFORMATION
  Report Type: Report from Study
  Country: CO (occurrence: CO)
  Receive Date: 20170120
  Receipt Date: 20170120
  Transmission Date: 20170428
  Serious: Yes (Death, Hospitalization, Other)
  Sender: FDA-Public Use
  Company Number: PHHY2016CO177775

PATIENT
  Age: 76 Year
  Sex: Female
  Weight: 43 kg

DRUGS (1)
  1. EXJADE [Suspect]
     Active Substance: DEFERASIROX
     Indication: IRON OVERLOAD
     Dosage: 500 MG, BID
     Route: 048
     Dates: start: 20161201

REACTIONS (9)
  - Pulmonary haemorrhage [Fatal]
  - Leukaemia [Unknown]
  - Metastases to pancreas [Unknown]
  - Dizziness [Unknown]
  - Platelet count decreased [Unknown]
  - Diarrhoea [Unknown]
  - Metastases to liver [Unknown]
  - Haemoglobin decreased [Unknown]
  - Pulmonary oedema [Fatal]

NARRATIVE: CASE EVENT DATE: 20161219
